FAERS Safety Report 6382401-8 (Version None)
Quarter: 2009Q3

REPORT INFORMATION
  Report Type: 
  Country: None (occurrence: None)
  Receive Date: 20090928
  Receipt Date: 20090928
  Transmission Date: 20100115
  Serious: Yes (Life-Threatening)
  Sender: FDA-Public Use
  Company Number: None

PATIENT
  Sex: Female
  Weight: 68 kg

DRUGS (1)
  1. NUVARING [Suspect]
     Indication: CONTRACEPTION
     Dosage: 36 1/MONTH (3 YEARS) VAGINAL
     Route: 067
     Dates: start: 20040701, end: 20070615

REACTIONS (3)
  - GASTROINTESTINAL NECROSIS [None]
  - HEPATIC VEIN THROMBOSIS [None]
  - MESENTERIC VEIN THROMBOSIS [None]
